FAERS Safety Report 18604633 (Version 1)
Quarter: 2020Q4

REPORT INFORMATION
  Report Type: Report from Study
  Country: DE (occurrence: DE)
  Receive Date: 20201211
  Receipt Date: 20201211
  Transmission Date: 20210114
  Serious: Yes (Other)
  Sender: FDA-Public Use
  Company Number: DE-SUN PHARMACEUTICAL INDUSTRIES LTD-2020R1-265701

PATIENT
  Age: 40 Year
  Sex: Female

DRUGS (27)
  1. HALOPERIDOL. [Suspect]
     Active Substance: HALOPERIDOL
     Indication: MOVEMENT DISORDER
     Dosage: UNK
     Route: 065
  2. PROPOFOL. [Concomitant]
     Active Substance: PROPOFOL
     Indication: CHOREOATHETOSIS
     Dosage: 5.45MG/KG/H
     Route: 042
  3. CLONAZEPAM. [Concomitant]
     Active Substance: CLONAZEPAM
     Indication: OPISTHOTONUS
     Route: 048
  4. CLONAZEPAM. [Concomitant]
     Active Substance: CLONAZEPAM
     Indication: CHOREOATHETOSIS
  5. MIDAZOLAM. [Concomitant]
     Active Substance: MIDAZOLAM
     Indication: OPISTHOTONUS
  6. PROPOFOL. [Concomitant]
     Active Substance: PROPOFOL
     Indication: OPISTHOTONUS
  7. CLONIDINE. [Concomitant]
     Active Substance: CLONIDINE
     Indication: CHOREOATHETOSIS
  8. BACLOFEN. [Concomitant]
     Active Substance: BACLOFEN
     Indication: OPISTHOTONUS
     Route: 048
  9. TRIHEXYPHENIDYL [Concomitant]
     Active Substance: TRIHEXYPHENIDYL
     Indication: CHOREOATHETOSIS
     Route: 048
  10. TETRABENAZINE. [Concomitant]
     Active Substance: TETRABENAZINE
     Indication: OPISTHOTONUS
  11. OLANZAPINE. [Suspect]
     Active Substance: OLANZAPINE
     Indication: CHOREOATHETOSIS
  12. SUFENTA [Suspect]
     Active Substance: SUFENTANIL CITRATE
     Indication: CHOREOATHETOSIS
     Dosage: ()
     Route: 065
  13. OLANZAPINE. [Suspect]
     Active Substance: OLANZAPINE
     Indication: OPISTHOTONUS
  14. SUFENTA [Suspect]
     Active Substance: SUFENTANIL CITRATE
     Indication: OPISTHOTONUS
     Dosage: 0.3 UG/KG/H
     Route: 042
  15. TRIHEXYPHENIDYL [Concomitant]
     Active Substance: TRIHEXYPHENIDYL
     Indication: OPISTHOTONUS
  16. DUROGESIC SMAT [Suspect]
     Active Substance: FENTANYL
     Indication: CHOREOATHETOSIS
     Dosage: 100 MICROGRAM
     Route: 062
  17. MIDAZOLAM. [Concomitant]
     Active Substance: MIDAZOLAM
     Indication: CHOREOATHETOSIS
     Dosage: 0.23 MG/KG/H
     Route: 042
  18. CLONIDINE. [Concomitant]
     Active Substance: CLONIDINE
     Indication: OPISTHOTONUS
     Dosage: 600 MICROGRAM
     Route: 048
  19. TETRABENAZINE. [Concomitant]
     Active Substance: TETRABENAZINE
     Indication: CHOREOATHETOSIS
     Route: 048
  20. DEXMEDETOMIDINE. [Concomitant]
     Active Substance: DEXMEDETOMIDINE
     Indication: CHOREOATHETOSIS
     Dosage: 1.6 UG/KG/H
     Route: 042
  21. DEXMEDETOMIDINE. [Concomitant]
     Active Substance: DEXMEDETOMIDINE
     Indication: OPISTHOTONUS
  22. LEVOMEPROMAZINE [Concomitant]
     Active Substance: LEVOMEPROMAZINE
     Indication: OPISTHOTONUS
     Route: 048
  23. OLANZAPINE. [Suspect]
     Active Substance: OLANZAPINE
     Indication: MOVEMENT DISORDER
     Dosage: UNK
     Route: 065
  24. TIAPRIDE [Suspect]
     Active Substance: TIAPRIDE
     Indication: MOVEMENT DISORDER
     Dosage: UNK
     Route: 065
  25. DUROGESIC SMAT [Suspect]
     Active Substance: FENTANYL
     Indication: OPISTHOTONUS
  26. LEVOMEPROMAZINE [Concomitant]
     Active Substance: LEVOMEPROMAZINE
     Indication: CHOREOATHETOSIS
     Route: 042
  27. BACLOFEN. [Concomitant]
     Active Substance: BACLOFEN
     Indication: CHOREOATHETOSIS

REACTIONS (2)
  - Drug ineffective [Unknown]
  - Drug ineffective for unapproved indication [Unknown]
